FAERS Safety Report 9750431 (Version 1)
Quarter: 2013Q4

REPORT INFORMATION
  Report Type: Spontaneous
  Country: US (occurrence: US)
  Receive Date: 20131212
  Receipt Date: 20131212
  Transmission Date: 20140711
  Serious: Yes (Other)
  Sender: FDA-Public Use
  Company Number: US-TEVA-396911USA

PATIENT
  Age: 29 Year
  Sex: Female
  Weight: 54.48 kg

DRUGS (4)
  1. PARAGARD 380A [Suspect]
     Route: 015
     Dates: start: 20130304, end: 20130319
  2. PARAGARD 380A [Suspect]
     Route: 015
     Dates: start: 20130319
  3. ZOLOFT [Concomitant]
     Indication: ANXIETY
  4. ZOLOFT [Concomitant]
     Indication: PANIC ATTACK

REACTIONS (1)
  - Device dislocation [Recovered/Resolved]
